FAERS Safety Report 4815120-7 (Version None)
Quarter: 2005Q4

REPORT INFORMATION
  Report Type: 
  Country: None (occurrence: None)
  Receive Date: 20051026
  Receipt Date: 20051006
  Transmission Date: 20060501
  Serious: Yes (Other)
  Sender: FDA-Public Use
  Company Number: GBS051018674

PATIENT
  Age: 16 Year
  Sex: Female
  Weight: 73 kg

DRUGS (1)
  1. STRATTERA [Suspect]
     Indication: ATTENTION DEFICIT/HYPERACTIVITY DISORDER
     Dosage: 40 MG/L DAY
     Route: 048
     Dates: start: 20050603

REACTIONS (3)
  - IMPULSIVE BEHAVIOUR [None]
  - INTENTIONAL OVERDOSE [None]
  - SUICIDE ATTEMPT [None]
